FAERS Safety Report 4302599-2 (Version None)
Quarter: 2004Q1

REPORT INFORMATION
  Report Type: 
  Country: None (occurrence: None)
  Receive Date: 20040224
  Receipt Date: 20040212
  Transmission Date: 20041129
  Serious: Yes (Hospitalization)
  Sender: FDA-Public Use
  Company Number: JP-BRISTOL-MYERS SQUIBB COMPANY-12504668

PATIENT
  Age: 56 Year
  Sex: Male

DRUGS (8)
  1. TAXOL [Suspect]
     Indication: GASTRIC CANCER
     Route: 042
     Dates: start: 20031217, end: 20031217
  2. TEGAFUR + GIMERACIL + OTERACIL POTASSIUM [Concomitant]
     Route: 048
     Dates: start: 20031217, end: 20031223
  3. SULPERAZON [Concomitant]
     Route: 048
     Dates: start: 20031220, end: 20031223
  4. SELBEX [Concomitant]
     Route: 048
     Dates: start: 20031219, end: 20031223
  5. CYTOTEC [Concomitant]
     Route: 048
     Dates: start: 20031219, end: 20031223
  6. PARIET [Concomitant]
     Route: 048
     Dates: start: 20031219, end: 20031223
  7. MS CONTIN [Concomitant]
     Route: 048
     Dates: start: 20031218, end: 20031223
  8. MAGNESIUM OXIDE [Concomitant]
     Route: 048
     Dates: start: 20031219, end: 20031223

REACTIONS (3)
  - DISSEMINATED INTRAVASCULAR COAGULATION [None]
  - HYDROCEPHALUS [None]
  - ILIAC VEIN THROMBOSIS [None]
